FAERS Safety Report 4763810-7 (Version None)
Quarter: 2005Q3

REPORT INFORMATION
  Report Type: 
  Country: None (occurrence: None)
  Receive Date: 20050901
  Receipt Date: 20050531
  Transmission Date: 20060218
  Serious: Yes (Other)
  Sender: FDA-Public Use
  Company Number: 18693

PATIENT
  Age: 56 Year
  Sex: Female
  Weight: 71.2147 kg

DRUGS (1)
  1. PACLITAXEL [Suspect]
     Indication: OVARIAN CANCER
     Dosage: 322MG/IV EVERY 21 DAYS OVER 3; SOMETIME AFTER APRIL 21, 2005

REACTIONS (3)
  - CHEST DISCOMFORT [None]
  - DYSPNOEA [None]
  - FLUSHING [None]
